FAERS Safety Report 9855090 (Version 1)
Quarter: 2014Q1

REPORT INFORMATION
  Report Type: Spontaneous
  Country: DE (occurrence: None)
  Receive Date: 20140127
  Receipt Date: 20140127
  Transmission Date: 20141002
  Serious: No
  Sender: FDA-Public Use
  Company Number: 2014P1000319

PATIENT
  Age: 22 Year
  Sex: Female

DRUGS (1)
  1. FUROSEMIDE [Suspect]

REACTIONS (6)
  - Hypokalaemia [None]
  - Myalgia [None]
  - Metabolic alkalosis [None]
  - Renal failure [None]
  - Blood creatine phosphokinase increased [None]
  - Electrocardiogram QT prolonged [None]
